FAERS Safety Report 9190669 (Version 1)
Quarter: 2013Q1

REPORT INFORMATION
  Report Type: Spontaneous
  Country: US (occurrence: US)
  Receive Date: 20130326
  Receipt Date: 20130326
  Transmission Date: 20140127
  Serious: Yes (Hospitalization)
  Sender: FDA-Public Use
  Company Number: US-BAYER-2013-035280

PATIENT
  Age: 25 Year
  Sex: Female

DRUGS (3)
  1. YAZ [Suspect]
     Indication: ACNE
  2. TETRACYCLINE [Concomitant]
     Dosage: 500 MG, UNK
     Route: 048
     Dates: start: 20100407
  3. CLINDAMAX [Concomitant]

REACTIONS (1)
  - Deep vein thrombosis [None]
